FAERS Safety Report 13267684 (Version 1)
Quarter: 2017Q1

REPORT INFORMATION
  Report Type: Spontaneous
  Country: DK (occurrence: DK)
  Receive Date: 20170224
  Receipt Date: 20170224
  Transmission Date: 20170428
  Serious: Yes (Hospitalization)
  Sender: FDA-Public Use
  Company Number: DK-AUROBINDO-AUR-APL-2017-30235

PATIENT
  Age: 8 Year
  Sex: Male

DRUGS (16)
  1. GABAPENTIN. [Suspect]
     Active Substance: GABAPENTIN
     Indication: EPILEPSY
     Dosage: UNK
     Route: 065
     Dates: start: 19960731
  2. FRISIUM [Suspect]
     Active Substance: CLOBAZAM
     Indication: EPILEPSY
     Dosage: UNK
     Route: 065
     Dates: start: 199904
  3. LAMICTAL [Suspect]
     Active Substance: LAMOTRIGINE
     Indication: EPILEPSY
     Dosage: UNK
     Route: 065
     Dates: start: 200203
  4. PHENOBARBITAL. [Suspect]
     Active Substance: PHENOBARBITAL
     Indication: EPILEPSY
     Dosage: UNK
     Route: 065
     Dates: start: 19960528
  5. VIMPAT [Suspect]
     Active Substance: LACOSAMIDE
     Indication: EPILEPSY
     Dosage: UNK
     Route: 065
     Dates: start: 20130201
  6. LYRICA [Suspect]
     Active Substance: PREGABALIN
     Indication: EPILEPSY
     Dosage: UNK
     Route: 065
     Dates: start: 201306
  7. TOPIMAX                            /00949801/ [Suspect]
     Active Substance: PREDNICARBATE
     Indication: EPILEPSY
     Route: 065
  8. TRILEPTAL [Suspect]
     Active Substance: OXCARBAZEPINE
     Indication: EPILEPSY
     Dosage: UNK
     Route: 065
     Dates: start: 19960711
  9. SABRILEX [Suspect]
     Active Substance: VIGABATRIN
     Indication: EPILEPSY
     Dosage: UNK
     Route: 065
     Dates: start: 19960617
  10. STESOLID [Concomitant]
     Active Substance: DIAZEPAM
     Indication: EPILEPSY
     Route: 065
  11. KEPPRA [Suspect]
     Active Substance: LEVETIRACETAM
     Indication: EPILEPSY
     Route: 065
  12. DEPRAKINE                          /00228501/ [Suspect]
     Active Substance: VALPROATE SODIUM
     Indication: EPILEPSY
     Dosage: UNK
     Route: 065
     Dates: start: 1996, end: 19960624
  13. ZEBINIX [Suspect]
     Active Substance: ESLICARBAZEPINE ACETATE
     Indication: EPILEPSY
     Dosage: UNK
     Route: 065
     Dates: start: 201206
  14. APYDAN /00123701/ [Suspect]
     Active Substance: AMMONIUM BROMIDE\CAFFEINE\PHENOBARBITAL\PHENYTOIN\SODIUM BROMIDE
     Indication: EPILEPSY
     Dosage: UNK
     Dates: start: 200009
  15. INOVELON [Suspect]
     Active Substance: RUFINAMIDE
     Indication: EPILEPSY
     Dosage: UNK
     Route: 065
     Dates: start: 201112
  16. MELATONIN [Concomitant]
     Active Substance: MELATONIN
     Indication: MIDDLE INSOMNIA
     Dosage: UNK
     Route: 065
     Dates: start: 1998

REACTIONS (4)
  - Scoliosis [Unknown]
  - Upper limb fracture [Unknown]
  - Osteoporosis [Unknown]
  - Seizure [Unknown]

NARRATIVE: CASE EVENT DATE: 200409
